FAERS Safety Report 25325497 (Version 1)
Quarter: 2025Q2

REPORT INFORMATION
  Report Type: Spontaneous
  Country: FR (occurrence: FR)
  Receive Date: 20250516
  Receipt Date: 20250516
  Transmission Date: 20250717
  Serious: Yes (Life-Threatening, Hospitalization, Other)
  Sender: MYLAN
  Company Number: None

PATIENT
  Age: 43 Year
  Sex: Female

DRUGS (2)
  1. ALPRAZOLAM [Suspect]
     Active Substance: ALPRAZOLAM
     Indication: Product used for unknown indication
  2. COCAINE [Suspect]
     Active Substance: COCAINE
     Indication: Product used for unknown indication
     Dosage: UNK, MONTHLY (UP TO 10 GRAMS/MONTH)

REACTIONS (8)
  - Overdose [Recovering/Resolving]
  - Altered state of consciousness [Recovering/Resolving]
  - Intentional product misuse [Recovering/Resolving]
  - Drug dependence [Recovering/Resolving]
  - Affect lability [Recovering/Resolving]
  - Restlessness [Recovering/Resolving]
  - Anhedonia [Recovering/Resolving]
  - Anxiety [Recovering/Resolving]
